FAERS Safety Report 10497427 (Version 2)
Quarter: 2014Q4

REPORT INFORMATION
  Report Type: Report from Study
  Country: DE (occurrence: DE)
  Receive Date: 20141006
  Receipt Date: 20141006
  Transmission Date: 20150528
  Serious: Yes (Hospitalization)
  Sender: FDA-Public Use
  Company Number: DE-ROCHE-1377401

PATIENT
  Age: 79 Year
  Sex: Female
  Weight: 65 kg

DRUGS (6)
  1. ACIDUM SALICYLICUM [Concomitant]
  2. CRATAEGUTT NOVO [Suspect]
     Active Substance: CRATAEGUS LAEVIGATA LEAF
     Indication: PROPHYLAXIS
     Route: 065
  3. RANIBIZUMAB [Suspect]
     Active Substance: RANIBIZUMAB
     Indication: PRODUCT USED FOR UNKNOWN INDICATION
     Route: 050
     Dates: start: 20130312
  4. ENALAPRIL MALEATE. [Suspect]
     Active Substance: ENALAPRIL MALEATE
     Indication: HYPERTENSION
     Route: 065
  5. TEBONIN [Suspect]
     Active Substance: GINKGO
     Indication: PROPHYLAXIS
     Route: 065
  6. RANIBIZUMAB [Suspect]
     Active Substance: RANIBIZUMAB
     Route: 050
     Dates: start: 20131111

REACTIONS (4)
  - Carotid arteriosclerosis [Unknown]
  - Aortic valve incompetence [Unknown]
  - Osteoarthritis [Unknown]
  - Arteriosclerosis coronary artery [Unknown]

NARRATIVE: CASE EVENT DATE: 20140323
